FAERS Safety Report 7136991-8 (Version None)
Quarter: 2010Q4

REPORT INFORMATION
  Report Type: 
  Country: None (occurrence: None)
  Receive Date: 20101206
  Receipt Date: 20101122
  Transmission Date: 20110411
  Serious: Yes (Death)
  Sender: FDA-Public Use
  Company Number: US-CELGENEUS-163-21880-10112756

PATIENT
  Sex: Female

DRUGS (5)
  1. REVLIMID [Suspect]
     Indication: MULTIPLE MYELOMA
     Route: 048
     Dates: start: 20060901
  2. REVLIMID [Suspect]
     Route: 048
     Dates: start: 20061201
  3. REVLIMID [Suspect]
     Dosage: 10MG-5MG
     Route: 048
     Dates: start: 20080201
  4. REVLIMID [Suspect]
     Dosage: 10MG-15MG
     Route: 048
     Dates: start: 20091201
  5. REVLIMID [Suspect]
     Route: 048
     Dates: start: 20101001, end: 20100101

REACTIONS (1)
  - PNEUMONIA [None]
